FAERS Safety Report 8173656-8 (Version None)
Quarter: 2012Q1

REPORT INFORMATION
  Report Type: 
  Country: None (occurrence: None)
  Receive Date: 20120224
  Receipt Date: 20120220
  Transmission Date: 20120608
  Serious: Yes (Hospitalization, Disabling)
  Sender: FDA-Public Use
  Company Number: 2012MA002280

PATIENT
  Age: 77 Year
  Sex: Male
  Weight: 87 kg

DRUGS (11)
  1. WARFARIN SODIUM [Concomitant]
  2. ERGOCALCIFEROL [Concomitant]
  3. CARBAMAZEPINE [Suspect]
     Indication: PAIN
     Dosage: 200 MG, TID, PO
     Route: 048
  4. TERAZOSIN HCL [Concomitant]
  5. SAW PALMETTO [Concomitant]
  6. BACLOFEN [Suspect]
     Indication: PAIN
     Dosage: 5 MG, TID, PO
     Route: 048
  7. FEVERALL [Suspect]
     Indication: PAIN
     Dosage: 500 MG, QHG, PO
     Route: 048
  8. HYDROMORPHONE HCL [Suspect]
     Dosage: 1 MG; Q3H, SQ
  9. HYDROCODONE BITARTRATE [Suspect]
     Indication: PAIN
     Dosage: 7.5 MG
  10. GABAPENTIN [Suspect]
     Dosage: 300 MG, BID, PO
     Route: 048
  11. TRAMADOL HCL [Suspect]
     Indication: PAIN
     Dosage: 50 MG, TID, PO
     Route: 048

REACTIONS (7)
  - TRIGEMINAL NEURALGIA [None]
  - DEHYDRATION [None]
  - DYSPHAGIA [None]
  - SEXUAL DYSFUNCTION [None]
  - PAIN IN JAW [None]
  - MASTICATION DISORDER [None]
  - HYPOPHAGIA [None]
